FAERS Safety Report 5229084-8 (Version None)
Quarter: 2007Q1

REPORT INFORMATION
  Report Type: 
  Country: None (occurrence: None)
  Receive Date: 20061201
  Receipt Date: 20060823
  Transmission Date: 20070707
  Serious: No
  Sender: FDA-Public Use
  Company Number: US200608003248

PATIENT
  Age: 73 Year
  Sex: Female

DRUGS (17)
  1. CYMBALTA [Suspect]
     Indication: DEPRESSION
     Dosage: SEE IMAGE
     Dates: start: 20060606, end: 20060101
  2. CYMBALTA [Suspect]
     Indication: DEPRESSION
     Dosage: SEE IMAGE
     Dates: start: 20060101
  3. PAXIL [Concomitant]
  4. GLUCOPHAGE [Concomitant]
  5. PRANDIN ^NOVO NORDISK^ (REPAGLINIDE) [Concomitant]
  6. MORPHINE [Concomitant]
  7. BENADRYL (AMMONIUM CHLORIDE, DIPHENYHYDRAMINE HYDROCHLORIDE, MENTHOL, [Concomitant]
  8. PEPCID AC [Concomitant]
  9. LISINOPRIL AND HYDROCHLOROTHIAZIDE [Concomitant]
  10. PROVIGIL [Concomitant]
  11. STOOL SOFTENER (DOCUSATE SODIUM) [Concomitant]
  12. TRICOR [Concomitant]
  13. ASPIRIN [Concomitant]
  14. MULTIVITAMIN [Concomitant]
  15. CALTRATE (CALCIUM CARBONATE) [Concomitant]
  16. AMBIEN [Concomitant]
  17. TYLENOL /USA/ (PARACETAMOL) [Concomitant]

REACTIONS (8)
  - CONSTIPATION [None]
  - GASTRITIS [None]
  - HICCUPS [None]
  - INSOMNIA [None]
  - IRRITABILITY [None]
  - MALAISE [None]
  - NAUSEA [None]
  - VOMITING [None]
